FAERS Safety Report 10749387 (Version 1)
Quarter: 2015Q1

REPORT INFORMATION
  Report Type: Spontaneous
  Country: US (occurrence: US)
  Receive Date: 20150129
  Receipt Date: 20150129
  Transmission Date: 20150721
  Serious: No
  Sender: FDA-Public Use
  Company Number: US-GLAXOSMITHKLINE-US2015GSK006391

PATIENT
  Age: 62 Year
  Sex: Female

DRUGS (13)
  1. RANITIDINE [Concomitant]
     Active Substance: RANITIDINE\RANITIDINE HYDROCHLORIDE
  2. LETROZOLE. [Concomitant]
     Active Substance: LETROZOLE
  3. WELLBUTRIN SR [Suspect]
     Active Substance: BUPROPION HYDROCHLORIDE
     Indication: COMPLEX REGIONAL PAIN SYNDROME
     Dosage: 150 MG, BID
  4. WELLBUTRIN SR [Suspect]
     Active Substance: BUPROPION HYDROCHLORIDE
     Indication: DIABETIC NEUROPATHY
  5. ASPIRIN. [Concomitant]
     Active Substance: ASPIRIN
  6. METFORMIN [Concomitant]
     Active Substance: METFORMIN HYDROCHLORIDE
  7. WELLBUTRIN SR [Suspect]
     Active Substance: BUPROPION HYDROCHLORIDE
     Indication: FIBROMYALGIA
  8. CITALOPRAM [Concomitant]
     Active Substance: CITALOPRAM HYDROBROMIDE
  9. LANTUS [Concomitant]
     Active Substance: INSULIN GLARGINE
  10. NOVOLIN R [Concomitant]
     Active Substance: INSULIN HUMAN
  11. ENALAPRIL + HYDROCHLOROTHIAZIDE [Concomitant]
  12. LOVASTATIN. [Concomitant]
     Active Substance: LOVASTATIN
  13. ALLEVIATE [Concomitant]

REACTIONS (2)
  - Drug dose omission [Unknown]
  - Pain [Not Recovered/Not Resolved]

NARRATIVE: CASE EVENT DATE: 20141225
